FAERS Safety Report 24449113 (Version 5)
Quarter: 2025Q2

REPORT INFORMATION
  Report Type: Report from Study
  Country: US (occurrence: US)
  Receive Date: 20241017
  Receipt Date: 20250531
  Transmission Date: 20250716
  Serious: Yes (Other)
  Sender: TAKEDA
  Company Number: US-TAKEDA-2023TUS089853

PATIENT
  Sex: Female
  Weight: 69 kg

DRUGS (11)
  1. LANADELUMAB [Suspect]
     Active Substance: LANADELUMAB
     Indication: Immune system disorder
     Dosage: 300 MILLIGRAM, Q2WEEKS
     Dates: start: 20230829
  2. LANADELUMAB [Suspect]
     Active Substance: LANADELUMAB
  3. LANADELUMAB [Suspect]
     Active Substance: LANADELUMAB
  4. BERINERT [Suspect]
     Active Substance: HUMAN C1-ESTERASE INHIBITOR
     Indication: Product used for unknown indication
  5. FLUTICASONE PROPIONATE\SALMETEROL XINAFOATE [Concomitant]
     Active Substance: FLUTICASONE PROPIONATE\SALMETEROL XINAFOATE
  6. FAMOTIDINE [Concomitant]
     Active Substance: FAMOTIDINE
  7. EPINEPHRINE [Concomitant]
     Active Substance: EPINEPHRINE
  8. ALBUTEROL SULFATE [Concomitant]
     Active Substance: ALBUTEROL SULFATE
  9. METFORMIN HYDROCHLORIDE [Concomitant]
     Active Substance: METFORMIN HYDROCHLORIDE
  10. CROMOLYN SODIUM [Concomitant]
     Active Substance: CROMOLYN SODIUM
  11. ICATIBANT [Concomitant]
     Active Substance: ICATIBANT ACETATE

REACTIONS (5)
  - Cataract [Unknown]
  - Post procedural complication [Unknown]
  - Blood cholesterol increased [Unknown]
  - Influenza like illness [Unknown]
  - Hereditary angioedema [Recovered/Resolved]
